FAERS Safety Report 16180990 (Version 1)
Quarter: 2019Q2

REPORT INFORMATION
  Report Type: Spontaneous
  Country: DK (occurrence: DK)
  Receive Date: 20190410
  Receipt Date: 20190410
  Transmission Date: 20190711
  Serious: Yes (Hospitalization)
  Sender: FDA-Public Use
  Company Number: DK-B.I. PHARMACEUTICALS,INC./RIDGEFIELD-2019-12-001217

PATIENT
  Age: 47 Year
  Sex: Male

DRUGS (4)
  1. GIONA [Concomitant]
     Indication: ASTHMA
     Dosage: STYRKE: 200MIKROGRAM/DOSIS, FORM OF ADMINISTRATION- INHALATION POWDER
     Route: 055
     Dates: start: 20190123
  2. JARDIANCE [Suspect]
     Active Substance: EMPAGLIFLOZIN
     Indication: TYPE 2 DIABETES MELLITUS
     Dosage: STRENGTH: 10 MG
     Route: 048
     Dates: start: 201902, end: 20190322
  3. ATORVASTATIN [Concomitant]
     Active Substance: ATORVASTATIN
     Indication: HYPERCHOLESTEROLAEMIA
     Dosage: STYRKE: 80MG
     Route: 048
     Dates: start: 20181025
  4. METFORMIN [Concomitant]
     Active Substance: METFORMIN HYDROCHLORIDE
     Indication: TYPE 2 DIABETES MELLITUS
     Dosage: STYRKE. 500MG
     Route: 048
     Dates: start: 20171108, end: 20190327

REACTIONS (1)
  - Euglycaemic diabetic ketoacidosis [Recovered/Resolved]

NARRATIVE: CASE EVENT DATE: 20190322
